FAERS Safety Report 12982702 (Version 2)
Quarter: 2017Q1

REPORT INFORMATION
  Report Type: Spontaneous
  Country: JP (occurrence: JP)
  Receive Date: 20161129
  Receipt Date: 20170202
  Transmission Date: 20170428
  Serious: Yes (Other)
  Sender: FDA-Public Use
  Company Number: JP-ELI_LILLY_AND_COMPANY-JP201609007665

PATIENT
  Age: 54 Year
  Sex: Male

DRUGS (3)
  1. ERBITUX [Suspect]
     Active Substance: CETUXIMAB
     Indication: HYPOPHARYNGEAL CANCER
     Dosage: 400 MG/M2, WEEKLY (1/W)
     Route: 042
     Dates: start: 20140916, end: 20160115
  2. FLUOROURACIL. [Suspect]
     Active Substance: FLUOROURACIL
     Indication: SQUAMOUS CELL CARCINOMA OF HEAD AND NECK
     Dosage: UNK UNK, UNKNOWN
     Route: 042
  3. CISPLATIN. [Suspect]
     Active Substance: CISPLATIN
     Indication: SQUAMOUS CELL CARCINOMA OF HEAD AND NECK
     Dosage: UNK UNK, UNKNOWN
     Route: 042

REACTIONS (13)
  - Hyperkalaemia [Recovered/Resolved]
  - Decreased appetite [Recovering/Resolving]
  - Platelet count decreased [Recovered/Resolved]
  - Hyponatraemia [Recovered/Resolved]
  - Hypocalcaemia [Recovered/Resolved]
  - Infusion related reaction [Recovered/Resolved]
  - Dry skin [Unknown]
  - Dermatitis acneiform [Unknown]
  - Hypernatraemia [Recovered/Resolved]
  - White blood cell count decreased [Recovered/Resolved]
  - Alanine aminotransferase increased [Recovered/Resolved]
  - Fatigue [Recovering/Resolving]
  - Paronychia [Recovering/Resolving]

NARRATIVE: CASE EVENT DATE: 20140916
